FAERS Safety Report 4605965-0 (Version None)
Quarter: 2005Q1

REPORT INFORMATION
  Report Type: 
  Country: None (occurrence: None)
  Receive Date: 20050311
  Receipt Date: 20050302
  Transmission Date: 20050727
  Serious: Yes (Hospitalization)
  Sender: FDA-Public Use
  Company Number: FR-GLAXOSMITHKLINE-B0373407A

PATIENT
  Age: 71 Year
  Sex: Female

DRUGS (13)
  1. ZELITREX [Suspect]
     Indication: HERPES ZOSTER
     Dosage: 1UNIT TWICE PER DAY
     Route: 048
  2. ETOPOSIDE [Suspect]
     Indication: LYMPHOMA
     Dosage: 45MG PER DAY
     Route: 042
     Dates: start: 20050112, end: 20050115
  3. CISPLATIN [Suspect]
     Indication: LYMPHOMA
     Dosage: 28MG PER DAY
     Route: 042
     Dates: start: 20050112, end: 20050112
  4. MABTHERA [Suspect]
     Indication: LYMPHOMA
     Dosage: 550MG PER DAY
     Route: 042
     Dates: start: 20050111, end: 20050111
  5. STILNOX [Suspect]
     Dosage: 10MG PER DAY
     Route: 048
  6. ARACYTINE [Suspect]
     Indication: LYMPHOMA
     Dosage: 1400MG PER DAY
     Route: 042
     Dates: start: 20050116, end: 20050116
  7. NICARDIPINE HCL [Concomitant]
     Dosage: 1UNIT THREE TIMES PER DAY
     Route: 048
  8. TRIMEBUTINE [Concomitant]
     Dosage: 1UNIT THREE TIMES PER DAY
     Route: 048
  9. ORACILLINE [Concomitant]
     Dosage: 1000000UNIT THREE TIMES PER DAY
     Route: 048
  10. PYOSTACINE [Concomitant]
     Dosage: 2UNIT THREE TIMES PER DAY
     Route: 048
  11. INNOHEP [Concomitant]
     Dosage: 1UNIT PER DAY
     Route: 058
     Dates: start: 20050120, end: 20050126
  12. NEORECORMON [Concomitant]
     Dosage: 30000UNIT PER DAY
     Dates: start: 20050121, end: 20050128
  13. NEUPOGEN [Concomitant]
     Dosage: 300UNIT PER DAY
     Dates: start: 20050119, end: 20050126

REACTIONS (6)
  - BALANCE DISORDER [None]
  - DIZZINESS [None]
  - HEADACHE [None]
  - NAUSEA [None]
  - TACHYCARDIA [None]
  - VOMITING [None]
